FAERS Safety Report 13662156 (Version 1)
Quarter: 2017Q2

REPORT INFORMATION
  Report Type: Spontaneous
  Country: US (occurrence: US)
  Receive Date: 20170616
  Receipt Date: 20170616
  Transmission Date: 20170830
  Serious: Yes (Other)
  Sender: FDA-Public Use
  Company Number: US-009507513-1706USA007318

PATIENT
  Sex: Female

DRUGS (5)
  1. EMEND [Suspect]
     Active Substance: APREPITANT
     Indication: PROCEDURAL NAUSEA
  2. EMEND [Suspect]
     Active Substance: APREPITANT
     Indication: PROCEDURAL VOMITING
     Dosage: UNK
     Route: 048
     Dates: start: 201609
  3. NADOLOL. [Concomitant]
     Active Substance: NADOLOL
  4. CYCLOPHOSPHAMIDE. [Concomitant]
     Active Substance: CYCLOPHOSPHAMIDE
  5. DOXORUBICIN [Concomitant]
     Active Substance: DOXORUBICIN

REACTIONS (1)
  - Breast cancer [Unknown]
